FAERS Safety Report 12936181 (Version 1)
Quarter: 2016Q4

REPORT INFORMATION
  Report Type: Spontaneous
  Country: US (occurrence: US)
  Receive Date: 20161113
  Receipt Date: 20161113
  Transmission Date: 20170207
  Serious: No
  Sender: FDA-Public Use
  Company Number: None

PATIENT
  Age: 53 Year
  Sex: Female

DRUGS (1)
  1. TECFIDERA [Suspect]
     Active Substance: DIMETHYL FUMARATE
     Indication: MULTIPLE SCLEROSIS
     Route: 048
     Dates: start: 20151101, end: 20161113

REACTIONS (4)
  - Flushing [None]
  - White blood cell count decreased [None]
  - Gastrointestinal disorder [None]
  - Off label use [None]

NARRATIVE: CASE EVENT DATE: 20161003
